FAERS Safety Report 7051210-9 (Version None)
Quarter: 2010Q4

REPORT INFORMATION
  Report Type: 
  Country: None (occurrence: None)
  Receive Date: 20101014
  Receipt Date: 20100915
  Transmission Date: 20110411
  Serious: Yes (Hospitalization)
  Sender: FDA-Public Use
  Company Number: 2010004330

PATIENT
  Age: 85 Year
  Sex: Male

DRUGS (9)
  1. ERLOTINIB HYDROCHLORIDE [Suspect]
     Indication: NON-SMALL CELL LUNG CANCER RECURRENT
     Dosage: ORAL
     Route: 048
     Dates: start: 20100826
  2. DIVOAN TRIPLE [Concomitant]
  3. LORTAB (VICODIN) [Concomitant]
  4. ASPIRIN [Concomitant]
  5. NITROFURANTOIN [Concomitant]
  6. CLINDAMYCIN [Concomitant]
  7. ZOFRAN [Concomitant]
  8. AREDIA [Concomitant]
  9. MORPHINE SULFATE INJ [Concomitant]

REACTIONS (6)
  - BLOOD PRESSURE DECREASED [None]
  - RENAL FAILURE ACUTE [None]
  - SMALL INTESTINAL OBSTRUCTION [None]
  - URINARY TRACT INFECTION [None]
  - URINE OUTPUT DECREASED [None]
  - WEIGHT DECREASED [None]
